FAERS Safety Report 6987456 (Version 3)
Quarter: 2012Q4

REPORT INFORMATION
  Report Type: 
  Country: US (occurrence: US)
  Receive Date: 20060721
  Receipt Date: 20121017
  Transmission Date: 20130627
  Serious: Yes (Other)
  Sender: FDA-Public Use
  Company Number: US-PFIZER INC-2006087876

PATIENT
  Age: 59 Year
  Sex: Female

DRUGS (13)
  1. PROVERA [Suspect]
     Indication: HORMONE REPLACEMENT THERAPY
     Dosage: UNK
     Route: 048
     Dates: start: 1989, end: 1995
  2. PROVERA [Suspect]
     Indication: MENOPAUSAL SYMPTOMS
  3. PREMARIN [Suspect]
     Indication: HORMONE REPLACEMENT THERAPY
     Dosage: UNK
     Dates: start: 1989, end: 1995
  4. PREMARIN [Suspect]
     Indication: MENOPAUSAL SYMPTOMS
  5. ESTRADIOL [Suspect]
     Indication: HORMONE REPLACEMENT THERAPY
     Dosage: UNK
     Dates: end: 1999
  6. ESTRADIOL [Suspect]
     Indication: MENOPAUSAL SYMPTOMS
  7. MEDROXYPROGESTERONE ACETATE [Suspect]
     Indication: HORMONE REPLACEMENT THERAPY
     Dosage: UNK
     Route: 048
     Dates: start: 1996, end: 1999
  8. CYCRIN [Suspect]
     Indication: HORMONE REPLACEMENT THERAPY
     Dosage: UNK
     Dates: end: 1999
  9. CYCRIN [Suspect]
     Indication: MENOPAUSAL SYMPTOMS
  10. ESTRACE [Suspect]
     Indication: HORMONE REPLACEMENT THERAPY
  11. NADOLOL [Concomitant]
     Indication: MIGRAINE
     Dosage: UNK
     Dates: start: 1996
  12. FLUOXETINE [Concomitant]
     Indication: MIGRAINE
     Dosage: UNK
     Dates: start: 1996
  13. IMITREX [Concomitant]
     Dosage: UNK
     Dates: start: 1998, end: 200602

REACTIONS (1)
  - Breast cancer female [Unknown]
